FAERS Safety Report 5627460-2 (Version None)
Quarter: 2008Q1

REPORT INFORMATION
  Report Type: 
  Country: None (occurrence: None)
  Receive Date: 20080215
  Receipt Date: 20080204
  Transmission Date: 20080703
  Serious: Yes (Hospitalization)
  Sender: FDA-Public Use
  Company Number: US-AMGEN-QUU246831

PATIENT
  Sex: Female

DRUGS (12)
  1. ENBREL [Suspect]
     Indication: PSORIATIC ARTHROPATHY
     Dates: start: 20040728, end: 20050420
  2. ENBREL [Suspect]
     Indication: PSORIASIS
  3. BEXTRA [Concomitant]
  4. GLUCOPHAGE [Concomitant]
  5. NORVASC [Concomitant]
  6. PRAVACHOL [Concomitant]
  7. LIPITOR [Concomitant]
  8. LANOXIN [Concomitant]
  9. ZESTRIL [Concomitant]
  10. DOXEPIN HCL [Concomitant]
  11. TRICOR [Concomitant]
  12. FOLIC ACID [Concomitant]

REACTIONS (2)
  - DRUG INEFFECTIVE [None]
  - OSTEOARTHRITIS [None]
